FAERS Safety Report 20518887 (Version 1)
Quarter: 2022Q1

REPORT INFORMATION
  Report Type: Report from Study
  Country: PT (occurrence: PT)
  Receive Date: 20220225
  Receipt Date: 20220225
  Transmission Date: 20220423
  Serious: Yes (Hospitalization)
  Sender: FDA-Public Use
  Company Number: PT-ROCHE-3015093

PATIENT
  Age: 60 Year
  Sex: Female
  Weight: 63 kg

DRUGS (22)
  1. TRASTUZUMAB [Suspect]
     Active Substance: TRASTUZUMAB
     Indication: HER2 positive breast cancer
     Dosage: UNK, EVERY 3 WEEKS
     Route: 065
     Dates: start: 20210514
  2. TRASTUZUMAB [Suspect]
     Active Substance: TRASTUZUMAB
     Dosage: UNK, EVERY 3 WEEKS
     Route: 065
     Dates: start: 20190724
  3. PACLITAXEL [Suspect]
     Active Substance: PACLITAXEL
     Indication: HER2 positive breast cancer
     Route: 065
     Dates: start: 20190724, end: 20200207
  4. LETROZOLE [Suspect]
     Active Substance: LETROZOLE
     Indication: HER2 positive breast cancer
     Dosage: UNK UNK, EVERY 3 WEEKS
     Route: 048
     Dates: start: 20200207
  5. PERTUZUMAB [Suspect]
     Active Substance: PERTUZUMAB
     Indication: HER2 positive breast cancer
     Dosage: UNK, EVERY 3 WEEKS
     Route: 065
     Dates: start: 20210514
  6. PERTUZUMAB [Suspect]
     Active Substance: PERTUZUMAB
     Dosage: UNK, EVERY 3 WEEKS
     Route: 065
     Dates: start: 20190724
  7. PANTOPRAZOLE [Concomitant]
     Active Substance: PANTOPRAZOLE
     Dates: end: 20211107
  8. CALCIUM\CHOLECALCIFEROL [Concomitant]
     Active Substance: CALCIUM\CHOLECALCIFEROL
     Dates: end: 20211107
  9. TRAMADOL [Concomitant]
     Active Substance: TRAMADOL
     Dosage: UNK
     Dates: end: 20211107
  10. ZOLPIDEM [Concomitant]
     Active Substance: ZOLPIDEM TARTRATE
     Dates: end: 20211107
  11. PERINDOPRIL [Concomitant]
     Active Substance: PERINDOPRIL
     Dates: start: 20191129, end: 20211107
  12. BISOPROLOL [Concomitant]
     Active Substance: BISOPROLOL
     Dates: end: 20211107
  13. ACETAMINOPHEN [Concomitant]
     Active Substance: ACETAMINOPHEN
     Dates: end: 20211107
  14. PREGABALIN [Concomitant]
     Active Substance: PREGABALIN
     Dates: end: 20211107
  15. POLYETHYLENE GLYCOLS [Concomitant]
     Active Substance: POLYETHYLENE GLYCOLS
     Dates: start: 20200124, end: 20211107
  16. METAMIZOL [Concomitant]
     Active Substance: METAMIZOLE SODIUM
     Dates: end: 20211107
  17. LOPERAMIDE [Concomitant]
     Active Substance: LOPERAMIDE
     Dates: end: 20211107
  18. LACTULOSE [Concomitant]
     Active Substance: LACTULOSE
     Dates: end: 20211107
  19. DULOXETINE [Concomitant]
     Active Substance: DULOXETINE
     Dates: start: 20200522, end: 20211107
  20. DEXAMETHASONE [Concomitant]
     Active Substance: DEXAMETHASONE
     Dates: end: 20211107
  21. ZOLEDRONIC ACID [Concomitant]
     Active Substance: ZOLEDRONIC ACID
     Dates: start: 20190723, end: 20211107
  22. METOCLOPRAMIDE [Concomitant]
     Active Substance: METOCLOPRAMIDE
     Dates: end: 20211107

REACTIONS (1)
  - Pneumonia [Recovered/Resolved]

NARRATIVE: CASE EVENT DATE: 20210710
